FAERS Safety Report 23767554 (Version 2)
Quarter: 2024Q2

REPORT INFORMATION
  Report Type: Spontaneous
  Country: US (occurrence: US)
  Receive Date: 20240422
  Receipt Date: 20240509
  Transmission Date: 20240716
  Serious: No
  Sender: FDA-Public Use
  Company Number: US-ALCON LABORATORIES-ALC2024US000947

PATIENT
  Sex: Female

DRUGS (1)
  1. ROCKLATAN [Suspect]
     Active Substance: LATANOPROST\NETARSUDIL MESYLATE
     Indication: Product used for unknown indication
     Dosage: 1 DROP IN THE EVENING BOTH EYES
     Route: 047

REACTIONS (3)
  - Product closure removal difficult [Unknown]
  - Product packaging difficult to open [Unknown]
  - Product dose omission issue [Unknown]

NARRATIVE: CASE EVENT DATE: 20240201
